FAERS Safety Report 9914092 (Version 1)
Quarter: 2014Q1

REPORT INFORMATION
  Report Type: Spontaneous
  Country: US (occurrence: None)
  Receive Date: 20140219
  Receipt Date: 20140219
  Transmission Date: 20141002
  Serious: Yes (Disabling)
  Sender: FDA-Public Use
  Company Number: None

PATIENT
  Age: 35 Year
  Sex: Male
  Weight: 99.79 kg

DRUGS (1)
  1. CIPROFLOXACIN 500 MG [Suspect]
     Indication: URINARY TRACT INFECTION
     Dosage: 1 PILL  TWICE DAILY  TAKEN BY MOUTH
     Route: 048
     Dates: start: 20140206, end: 20140211

REACTIONS (7)
  - Dizziness [None]
  - Eye pain [None]
  - Photophobia [None]
  - Fatigue [None]
  - Heart rate abnormal [None]
  - Sleep disorder [None]
  - Retinal vascular disorder [None]
